FAERS Safety Report 14216472 (Version 2)
Quarter: 2017Q4

REPORT INFORMATION
  Report Type: Spontaneous
  Country: IT (occurrence: IT)
  Receive Date: 20171122
  Receipt Date: 20171207
  Transmission Date: 20180321
  Serious: Yes (Other)
  Sender: FDA-Public Use
  Company Number: IT-ALLERGAN-1766398US

PATIENT
  Age: 92 Year
  Sex: Female
  Weight: 45 kg

DRUGS (2)
  1. COMBIGAN [Suspect]
     Active Substance: BRIMONIDINE TARTRATE\TIMOLOL MALEATE
     Indication: GLAUCOMA
     Dosage: 1 GTT, QD
     Route: 047
  2. COMBIGAN [Suspect]
     Active Substance: BRIMONIDINE TARTRATE\TIMOLOL MALEATE
     Dosage: 1 GTT, UNK
     Route: 047

REACTIONS (6)
  - Flushing [Not Recovered/Not Resolved]
  - Photophobia [Recovering/Resolving]
  - Eye pruritus [Recovering/Resolving]
  - Inappropriate schedule of drug administration [Unknown]
  - Foreign body sensation in eyes [Recovering/Resolving]
  - Ocular hyperaemia [Recovering/Resolving]

NARRATIVE: CASE EVENT DATE: 20171026
